FAERS Safety Report 22082730 (Version 1)
Quarter: 2023Q1

REPORT INFORMATION
  Report Type: Other
  Country: US (occurrence: None)
  Receive Date: 20230310
  Receipt Date: 20230310
  Transmission Date: 20230417
  Serious: Yes (Death, Hospitalization, Other)
  Sender: FDA-Public Use
  Company Number: US-ROCHE-3300094

PATIENT
  Age: 16 Year
  Sex: Male

DRUGS (16)
  1. MYCOPHENOLATE MOFETIL [Suspect]
     Active Substance: MYCOPHENOLATE MOFETIL
     Indication: Prophylaxis against transplant rejection
     Route: 065
  2. MYCOPHENOLATE MOFETIL [Suspect]
     Active Substance: MYCOPHENOLATE MOFETIL
     Route: 065
  3. MYCOPHENOLATE MOFETIL [Suspect]
     Active Substance: MYCOPHENOLATE MOFETIL
     Route: 065
  4. TACROLIMUS [Suspect]
     Active Substance: TACROLIMUS
     Indication: Prophylaxis against transplant rejection
     Dosage: INITIAL GOAL TROUGH 10-12 NG/ML, WEANED TO 6-8 NG/ML BY 6-MONTH POST TRANSPLANT
     Route: 065
  5. TACROLIMUS [Suspect]
     Active Substance: TACROLIMUS
     Dosage: WAS WEANED TO A TARGET TROUGH OF 5-8 NG/ML
     Route: 065
  6. PREDNISONE [Suspect]
     Active Substance: PREDNISONE
     Indication: Prophylaxis against transplant rejection
     Dosage: WEANED TO 0.24 MG/KG/ DAY BY 6-MONTH POST-TRANSPLANT
     Route: 065
  7. METHYLPREDNISOLONE [Concomitant]
     Active Substance: METHYLPREDNISOLONE
     Dosage: GIVEN INTRAOPERATIVELY AND THEN EVERY 2 WEEKS FOR A TOTAL OF 5 DOSES.
     Route: 042
  8. METHYLPREDNISOLONE [Concomitant]
     Active Substance: METHYLPREDNISOLONE
     Route: 042
  9. DACLIZUMAB [Concomitant]
     Active Substance: DACLIZUMAB
     Route: 042
  10. CYCLOSPORINE [Concomitant]
     Active Substance: CYCLOSPORINE
  11. FLUCONAZOLE [Concomitant]
     Active Substance: FLUCONAZOLE
  12. AMPHOTERICIN B [Concomitant]
     Active Substance: AMPHOTERICIN B
  13. NYSTATIN [Concomitant]
     Active Substance: NYSTATIN
  14. VALGANCICLOVIR [Concomitant]
     Active Substance: VALGANCICLOVIR
  15. NYSTATIN [Concomitant]
     Active Substance: NYSTATIN
  16. PENTAMIDINE [Concomitant]
     Active Substance: PENTAMIDINE

REACTIONS (10)
  - Nocardiosis [Fatal]
  - Brain abscess [Fatal]
  - CNS ventriculitis [Fatal]
  - Seizure [Fatal]
  - Intracranial pressure increased [Fatal]
  - Pneumonia bacterial [Recovering/Resolving]
  - Enterovirus infection [Unknown]
  - Rhinovirus infection [Unknown]
  - Lymphopenia [Unknown]
  - Candida infection [Unknown]
